FAERS Safety Report 16648388 (Version 1)
Quarter: 2019Q3

REPORT INFORMATION
  Report Type: Spontaneous
  Country: GB (occurrence: GB)
  Receive Date: 20190730
  Receipt Date: 20190730
  Transmission Date: 20191004
  Serious: Yes (Other)
  Sender: FDA-Public Use
  Company Number: GB-JNJFOC-20190728554

PATIENT
  Weight: 79.4 kg

DRUGS (1)
  1. LYRINEL [Suspect]
     Active Substance: OXYBUTYNIN
     Indication: POLLAKIURIA
     Route: 048

REACTIONS (1)
  - Dyspnoea [Not Recovered/Not Resolved]
